FAERS Safety Report 10762784 (Version 2)
Quarter: 2016Q1

REPORT INFORMATION
  Report Type: Spontaneous
  Country: BR (occurrence: BR)
  Receive Date: 20150204
  Receipt Date: 20160210
  Transmission Date: 20160525
  Serious: Yes (Hospitalization)
  Sender: FDA-Public Use
  Company Number: BR-PFIZER INC-2015041201

PATIENT
  Age: 71 Year
  Sex: Male

DRUGS (2)
  1. SOMATOSTATIN [Concomitant]
     Active Substance: SOMATOSTATIN
     Dosage: UNK
     Dates: start: 201211
  2. SUTENT [Suspect]
     Active Substance: SUNITINIB MALATE
     Indication: PANCREATIC NEUROENDOCRINE TUMOUR
     Dosage: 37.5 MG, UNSPECIFIED FREQUENCY, CONTINUOUS USE
     Route: 048
     Dates: start: 20130918, end: 201507

REACTIONS (1)
  - Nephrolithiasis [Not Recovered/Not Resolved]

NARRATIVE: CASE EVENT DATE: 201501
